FAERS Safety Report 9359593 (Version 2)
Quarter: 2013Q3

REPORT INFORMATION
  Report Type: Spontaneous
  Country: US (occurrence: US)
  Receive Date: 20130620
  Receipt Date: 20130802
  Transmission Date: 20140515
  Serious: Yes (Other)
  Sender: FDA-Public Use
  Company Number: US-RB-055051-13

PATIENT
  Age: 33 Year
  Sex: Female

DRUGS (4)
  1. SUBOXONE TABLET [Suspect]
     Indication: PAIN
     Route: 060
     Dates: start: 2006, end: 2011
  2. SUBOXONE FILM [Suspect]
     Indication: PAIN
     Dosage: SUBOXONE FILM
     Route: 060
     Dates: start: 2011, end: 2011
  3. BUPRENORPHINE GENERIC [Suspect]
     Indication: PAIN
     Route: 060
     Dates: start: 2011
  4. IBUPROFEN [Concomitant]
     Indication: PAIN
     Dosage: TAKES 2 TABLETS AS NEEDED
     Route: 048
     Dates: start: 2003

REACTIONS (4)
  - Off label use [Not Recovered/Not Resolved]
  - Urticaria [Recovered/Resolved]
  - Hand fracture [Recovering/Resolving]
  - Nail injury [Recovering/Resolving]
